FAERS Safety Report 5922192-5 (Version None)
Quarter: 2008Q3

REPORT INFORMATION
  Report Type: 
  Country: None (occurrence: None)
  Receive Date: 20080909
  Receipt Date: 20080708
  Transmission Date: 20090109
  Serious: Yes (Hospitalization)
  Sender: FDA-Public Use
  Company Number: 163-20785-08060482 (0)

PATIENT
  Age: 56 Year
  Sex: Female

DRUGS (7)
  1. THALOMID [Suspect]
     Indication: MULTIPLE MYELOMA
     Dosage: 200 MG, 2 IN 1 D, ORAL : 400 MG, 2 IN 1 D, ORAL
     Route: 048
     Dates: start: 20080130, end: 20080101
  2. THALOMID [Suspect]
     Indication: MULTIPLE MYELOMA
     Dosage: 200 MG, 2 IN 1 D, ORAL : 400 MG, 2 IN 1 D, ORAL
     Route: 048
     Dates: start: 20080227
  3. AMLODIPINE (AMLODIPINE) [Concomitant]
  4. VALSARTAN [Concomitant]
  5. ASPIRIN [Concomitant]
  6. NORCO [Concomitant]
  7. VICODIN [Concomitant]

REACTIONS (8)
  - ASTHENIA [None]
  - DIPLOPIA [None]
  - DIZZINESS [None]
  - DRUG INEFFECTIVE [None]
  - EYELID PTOSIS [None]
  - FATIGUE [None]
  - HYPERTENSION [None]
  - PLASMACYTOMA [None]
